FAERS Safety Report 19455434 (Version 3)
Quarter: 2021Q3

REPORT INFORMATION
  Report Type: Report from Study
  Country: US (occurrence: US)
  Receive Date: 20210623
  Receipt Date: 20210909
  Transmission Date: 20211014
  Serious: Yes (Life-Threatening, Hospitalization)
  Sender: FDA-Public Use
  Company Number: US-BAXTER-2021BAX016777

PATIENT
  Sex: Male
  Weight: 88.7 kg

DRUGS (12)
  1. IFEX [Suspect]
     Active Substance: IFOSFAMIDE
     Dosage: CYCLE
     Route: 042
     Dates: start: 20210602, end: 20210604
  2. IFEX [Suspect]
     Active Substance: IFOSFAMIDE
     Indication: OSTEOSARCOMA METASTATIC
     Dosage: DAY 1?3 OF EVERY 21 DAY CYCLE, 3000 MG/M2/DAY
     Route: 042
     Dates: start: 20210319, end: 20210321
  3. IFEX [Suspect]
     Active Substance: IFOSFAMIDE
     Dosage: FIFTH ROUND
     Route: 042
     Dates: start: 20210721, end: 20210723
  4. IFEX [Suspect]
     Active Substance: IFOSFAMIDE
     Dosage: CYCLE 2
     Route: 042
     Dates: start: 20210408, end: 20210410
  5. MESNEX [Suspect]
     Active Substance: MESNA
     Route: 042
     Dates: start: 20210602
  6. PEGFILGRASTIM [Concomitant]
     Active Substance: PEGFILGRASTIM
     Indication: WHITE BLOOD CELL COUNT DECREASED
     Route: 058
     Dates: start: 20210323, end: 20210323
  7. MESNEX [Suspect]
     Active Substance: MESNA
     Indication: PRODUCT USED FOR UNKNOWN INDICATION
     Route: 042
     Dates: start: 20210319, end: 20210319
  8. ETOPOSIDE. [Suspect]
     Active Substance: ETOPOSIDE
     Dosage: CYCLE 2
     Route: 042
     Dates: start: 20210408, end: 20210410
  9. MESNEX [Suspect]
     Active Substance: MESNA
     Route: 042
     Dates: start: 20210508, end: 20210510
  10. ETOPOSIDE. [Suspect]
     Active Substance: ETOPOSIDE
     Indication: OSTEOSARCOMA METASTATIC
     Dosage: DAY 1?3 OF EVERY 21 DAY CYCLE, 100 MG/M2/DAY
     Route: 042
     Dates: start: 20210318, end: 20210320
  11. ETOPOSIDE. [Suspect]
     Active Substance: ETOPOSIDE
     Dosage: FIFTH ROUND
     Route: 042
     Dates: start: 20210721, end: 20210723
  12. ETOPOSIDE. [Suspect]
     Active Substance: ETOPOSIDE
     Dosage: CYCLE
     Route: 042
     Dates: start: 20210602, end: 20210604

REACTIONS (20)
  - Staphylococcal infection [Recovered/Resolved]
  - White blood cell count decreased [Recovered/Resolved]
  - Anaemia [Recovered/Resolved]
  - Hypotension [Recovered/Resolved]
  - Sepsis [Recovered/Resolved]
  - Neutrophil count decreased [Recovered/Resolved]
  - Platelet count decreased [Not Recovered/Not Resolved]
  - Bacteraemia [Recovered/Resolved]
  - Pyrexia [Recovered/Resolved]
  - White blood cell count decreased [Not Recovered/Not Resolved]
  - Pyrexia [Recovered/Resolved]
  - Platelet count decreased [Not Recovered/Not Resolved]
  - Platelet count decreased [Recovered/Resolved]
  - Anaemia [Not Recovered/Not Resolved]
  - Febrile neutropenia [Recovered/Resolved]
  - Febrile neutropenia [Recovered/Resolved]
  - Febrile neutropenia [Not Recovered/Not Resolved]
  - Neutrophil count decreased [Recovered/Resolved]
  - White blood cell count decreased [Recovered/Resolved]
  - Anaemia [Recovered/Resolved]

NARRATIVE: CASE EVENT DATE: 20210327
